FAERS Safety Report 9257682 (Version 1)
Quarter: 2013Q2

REPORT INFORMATION
  Report Type: Spontaneous
  Country: AT (occurrence: AT)
  Receive Date: 20130426
  Receipt Date: 20130426
  Transmission Date: 20140414
  Serious: Yes (Hospitalization, Other)
  Sender: FDA-Public Use
  Company Number: AT-BAYER-2013-052539

PATIENT
  Age: 47 Year
  Sex: Female

DRUGS (2)
  1. YASMIN [Suspect]
  2. XARELTO [Suspect]
     Indication: DEEP VEIN THROMBOSIS

REACTIONS (3)
  - Deep vein thrombosis [None]
  - Haemorrhage [None]
  - Contraindication to medical treatment [None]
